FAERS Safety Report 4427836-5 (Version None)
Quarter: 2004Q3

REPORT INFORMATION
  Report Type: 
  Country: None (occurrence: None)
  Receive Date: 20040817
  Receipt Date: 20040729
  Transmission Date: 20050211
  Serious: Yes (Hospitalization)
  Sender: FDA-Public Use
  Company Number: GB-BRISTOL-MYERS SQUIBB COMPANY-12673505

PATIENT
  Age: 52 Year

DRUGS (3)
  1. CYCLOPHOSPHAMIDE [Suspect]
     Indication: LYMPHOMA
     Route: 042
     Dates: start: 20030314, end: 20030314
  2. MABTHERA [Suspect]
     Indication: LYMPHOMA
     Route: 042
     Dates: start: 20030317, end: 20030317
  3. FLUDARABINE [Suspect]
     Indication: LYMPHOMA
     Route: 042
     Dates: start: 20030314, end: 20030314

REACTIONS (3)
  - CYSTITIS HAEMORRHAGIC [None]
  - HYPOGAMMAGLOBULINAEMIA [None]
  - INFECTION [None]
